FAERS Safety Report 8942743 (Version 4)
Quarter: 2013Q4

REPORT INFORMATION
  Report Type: Spontaneous
  Country: BR (occurrence: BR)
  Receive Date: 20121204
  Receipt Date: 20131115
  Transmission Date: 20140711
  Serious: Yes (Other)
  Sender: FDA-Public Use
  Company Number: BR-PFIZER INC-2012276214

PATIENT
  Sex: Female

DRUGS (1)
  1. LYRICA [Suspect]
     Dosage: UNK
     Dates: end: 201207

REACTIONS (13)
  - Weight increased [Not Recovered/Not Resolved]
  - Pertussis [Unknown]
  - Productive cough [Unknown]
  - Fatigue [Unknown]
  - Formication [Unknown]
  - Local swelling [Recovering/Resolving]
  - Headache [Unknown]
  - Pain [Unknown]
  - Rhinitis allergic [Unknown]
  - Arthralgia [Unknown]
  - Alanine aminotransferase increased [Recovered/Resolved]
  - Chloasma [Not Recovered/Not Resolved]
  - Product name confusion [Unknown]
